FAERS Safety Report 24228003 (Version 1)
Quarter: 2024Q3

REPORT INFORMATION
  Report Type: Report from Study
  Country: UZ (occurrence: UZ)
  Receive Date: 20240820
  Receipt Date: 20240820
  Transmission Date: 20241017
  Serious: Yes (Other)
  Sender: ROCHE
  Company Number: UZ-ROCHE-10000055635

PATIENT

DRUGS (6)
  1. ATEZOLIZUMAB [Suspect]
     Active Substance: ATEZOLIZUMAB
     Indication: Transitional cell carcinoma
     Dosage: ON DAY 1 OF EACH 21 DAY CYCLE
     Route: 042
  2. ATEZOLIZUMAB [Suspect]
     Active Substance: ATEZOLIZUMAB
     Indication: Metastasis
  3. CISPLATIN [Suspect]
     Active Substance: CISPLATIN
     Indication: Metastasis
     Dosage: 70 MG/M2 BODY SURFACE AREA (BSA), ON DAY 1 OF EACH CYCLE
     Route: 042
  4. CISPLATIN [Suspect]
     Active Substance: CISPLATIN
     Indication: Transitional cell carcinoma
  5. GEMCITABINE [Suspect]
     Active Substance: GEMCITABINE
     Indication: Transitional cell carcinoma
     Dosage: ON DAYS 1 AND 8 OF EACH CYCLE
     Route: 042
  6. GEMCITABINE [Suspect]
     Active Substance: GEMCITABINE
     Indication: Metastasis

REACTIONS (1)
  - Haematotoxicity [Unknown]
